FAERS Safety Report 8437076-0 (Version None)
Quarter: 2012Q2

REPORT INFORMATION
  Report Type: 
  Country: None (occurrence: None)
  Receive Date: 20120614
  Receipt Date: 20120601
  Transmission Date: 20120825
  Serious: Yes (Hospitalization, Other)
  Sender: FDA-Public Use
  Company Number: DE-INCYTE CORPORATION-2012IN000872

PATIENT
  Sex: Male
  Weight: 76 kg

DRUGS (5)
  1. PANTOPRAZOLE [Concomitant]
  2. CALCIUM [Concomitant]
  3. INC424 [Suspect]
     Indication: MYELOFIBROSIS
     Dosage: 20 MG, BID
     Route: 048
     Dates: start: 20120327
  4. DIPIDOLOR [Concomitant]
  5. ACETAMINOPHEN [Concomitant]

REACTIONS (3)
  - ARTERIAL HAEMORRHAGE [None]
  - ANAEMIA [None]
  - PNEUMONIA [None]
